FAERS Safety Report 9458857 (Version 3)
Quarter: 2013Q4

REPORT INFORMATION
  Report Type: Spontaneous
  Country: RU (occurrence: RU)
  Receive Date: 20130814
  Receipt Date: 20131003
  Transmission Date: 20140711
  Serious: Yes (Hospitalization, Other)
  Sender: FDA-Public Use
  Company Number: RU-PFIZER INC-2013232495

PATIENT
  Age: 65 Year
  Sex: Female

DRUGS (10)
  1. LIPRIMAR [Suspect]
     Indication: ISCHAEMIC HEART DISEASE PROPHYLAXIS
     Dosage: 20 MG, 1X/DAY
     Route: 048
     Dates: start: 2011
  2. LIPRIMAR [Suspect]
     Indication: ARTERIOSCLEROSIS CORONARY ARTERY
  3. PLAVIX [Concomitant]
     Indication: PROPHYLAXIS
     Dosage: 75 MG, 1X/DAY
     Route: 048
  4. PRESTARIUM [Concomitant]
     Indication: HYPERTENSION
     Dosage: 10 MG, 1X/DAY, IN THE EVENING
     Route: 048
  5. PRESTARIUM [Concomitant]
     Indication: CARDIAC FAILURE CHRONIC
  6. PRESTARIUM [Concomitant]
     Indication: PROPHYLAXIS
  7. CONCOR [Concomitant]
     Indication: HYPERTENSION
     Dosage: 5 MG, 1X/DAY, IN THE MORNING
     Route: 048
  8. CONCOR [Concomitant]
     Indication: CARDIAC FAILURE CHRONIC
  9. CONCOR [Concomitant]
     Indication: ANGINA PECTORIS
  10. THROMBO ASS [Concomitant]
     Indication: THROMBOSIS PROPHYLAXIS
     Dosage: 100 MG, 1X/DAY
     Route: 048

REACTIONS (3)
  - Drug ineffective [Not Recovered/Not Resolved]
  - Arteriosclerosis coronary artery [Not Recovered/Not Resolved]
  - Product quality issue [Not Recovered/Not Resolved]
